FAERS Safety Report 4892577-7 (Version None)
Quarter: 2006Q1

REPORT INFORMATION
  Report Type: 
  Country: None (occurrence: None)
  Receive Date: 20060125
  Receipt Date: 20060125
  Transmission Date: 20060701
  Serious: Yes (Life-Threatening)
  Sender: FDA-Public Use
  Company Number: None

PATIENT
  Age: 39 Year
  Sex: Female

DRUGS (1)
  1. REMICADE [Suspect]
     Indication: CROHN'S DISEASE
     Dosage: 490 MG IV 2 ND DOSE
     Route: 042
     Dates: start: 20051122

REACTIONS (3)
  - CHEST DISCOMFORT [None]
  - CHOKING SENSATION [None]
  - DYSPNOEA [None]
